FAERS Safety Report 8001115-1 (Version None)
Quarter: 2011Q4

REPORT INFORMATION
  Report Type: 
  Country: None (occurrence: None)
  Receive Date: 20111222
  Receipt Date: 20111219
  Transmission Date: 20120403
  Serious: Yes (Life-Threatening, Hospitalization)
  Sender: FDA-Public Use
  Company Number: FR-SANOFI-AVENTIS-2011SA082865

PATIENT
  Age: 82 Year
  Sex: Female

DRUGS (10)
  1. ACTONEL [Concomitant]
     Indication: OSTEOPOROSIS
  2. IMOVANE [Concomitant]
  3. PANTOPRAZOLE [Concomitant]
  4. ACETAMINOPHEN AND TRAMADOL HCL [Interacting]
     Route: 048
  5. KERLONE [Concomitant]
  6. ESCITALOPRAM OXALATE [Concomitant]
  7. CALCIUM CARBONATE/COLECALCIFEROL [Concomitant]
     Indication: OSTEOPOROSIS
  8. RAMIPRIL [Interacting]
  9. LASIX [Suspect]
  10. DIAMICRON [Concomitant]

REACTIONS (3)
  - COMA [None]
  - DRUG INTERACTION [None]
  - OVERDOSE [None]
